FAERS Safety Report 24137671 (Version 1)
Quarter: 2024Q3

REPORT INFORMATION
  Report Type: Spontaneous
  Country: NL (occurrence: NL)
  Receive Date: 20240725
  Receipt Date: 20240725
  Transmission Date: 20241017
  Serious: Yes (Life-Threatening, Hospitalization)
  Sender: TEVA
  Company Number: None

PATIENT
  Age: 49 Year
  Sex: Female
  Weight: 86 kg

DRUGS (1)
  1. METHOTREXATE [Suspect]
     Active Substance: METHOTREXATE
     Indication: Rheumatoid arthritis
     Dosage: 1 PIECE 3 TIMES A DAY, METHOTREXATE, BRAND NAME NOT SPECIFIED
     Route: 065
     Dates: start: 20230201, end: 20230203

REACTIONS (1)
  - Pneumonitis [Recovered/Resolved]
